FAERS Safety Report 6590879-X (Version None)
Quarter: 2010Q1

REPORT INFORMATION
  Report Type: 
  Country: None (occurrence: None)
  Receive Date: 20100219
  Receipt Date: 20100209
  Transmission Date: 20100710
  Serious: Yes (Life-Threatening)
  Sender: FDA-Public Use
  Company Number: US-MERCK-1002USA01483

PATIENT
  Age: 71 Year
  Sex: Male

DRUGS (1)
  1. ZETIA [Suspect]
     Route: 048
     Dates: start: 20060101

REACTIONS (5)
  - FATIGUE [None]
  - LISTLESS [None]
  - ULCER [None]
  - VASCULITIS [None]
  - WEIGHT DECREASED [None]
